FAERS Safety Report 18722036 (Version 16)
Quarter: 2022Q1

REPORT INFORMATION
  Report Type: Spontaneous
  Country: GB (occurrence: GB)
  Receive Date: 20210111
  Receipt Date: 20220302
  Transmission Date: 20220423
  Serious: Yes (Hospitalization, Other)
  Sender: FDA-Public Use
  Company Number: GB-ROCHE-1753955

PATIENT
  Age: 40 Year
  Sex: Female

DRUGS (28)
  1. TAMOXIFEN [Suspect]
     Active Substance: TAMOXIFEN
     Indication: Breast cancer metastatic
     Dosage: UNK UNK, ONCE A DAY(1X/DAY)
     Route: 048
     Dates: start: 201603
  2. TAMOXIFEN [Suspect]
     Active Substance: TAMOXIFEN
     Dosage: UNK
     Route: 048
     Dates: start: 201603
  3. DOCETAXEL [Suspect]
     Active Substance: DOCETAXEL
     Indication: Breast cancer metastatic
     Dosage: 140 MG, ONCE IN 2 WEEKS
     Route: 042
     Dates: start: 20160324, end: 20160526
  4. DOCETAXEL [Suspect]
     Active Substance: DOCETAXEL
     Dosage: 110 MG, CYCLIC EVERY 2 WEEKS (THERAPY DISCONTINUED: PLANNED NUMBER OF CYCLES COMPLETED)
     Route: 042
     Dates: start: 20160526, end: 20160707
  5. PERTUZUMAB [Suspect]
     Active Substance: PERTUZUMAB
     Indication: Breast cancer metastatic
     Dosage: 420 MILLIGRAM EVERY 2 WEEK (420 MG, Q3W)
     Route: 042
     Dates: start: 20160413
  6. PERTUZUMAB [Suspect]
     Active Substance: PERTUZUMAB
     Dosage: 1260 MILLIGRAM, CYCLICAL ( 1 WEEK (420 MILLIGRAM, 3XW ))
     Route: 042
  7. PERTUZUMAB [Suspect]
     Active Substance: PERTUZUMAB
     Dosage: 840 MILLIGRAM, ONCE A DAY(LOADING DOSE:PLANNED NUMBER OF CYCLES COMPLETED)
     Route: 042
     Dates: start: 20160324
  8. PERTUZUMAB [Suspect]
     Active Substance: PERTUZUMAB
     Dosage: 420 MG, TIW (EVERY 3 WEEKS )
     Route: 042
     Dates: start: 20160413
  9. PERTUZUMAB [Suspect]
     Active Substance: PERTUZUMAB
     Dosage: 1260 MILLIGRAM, EVERY WEEK (420 MILLIGRAM, 3XW )
     Route: 042
     Dates: start: 20160324
  10. TRASTUZUMAB [Suspect]
     Active Substance: TRASTUZUMAB
     Indication: Breast cancer metastatic
     Dosage: 651 MG, EVERY 3 WEEKS, LOADING DOSEPLANNED NUMBER OF CYCLES COMPLETED
     Route: 041
     Dates: start: 20160323
  11. TRASTUZUMAB [Suspect]
     Active Substance: TRASTUZUMAB
     Dosage: 483 MG, CYCLIC (483 MG, EVERY 3 WEEKS)
     Route: 042
     Dates: start: 20160413
  12. TRASTUZUMAB [Suspect]
     Active Substance: TRASTUZUMAB
     Dosage: 483 MILLIGRAM EVERY 2 WEEK (483 MILLIGRAM, Q3W )
     Route: 042
     Dates: start: 20160413
  13. TRASTUZUMAB [Suspect]
     Active Substance: TRASTUZUMAB
     Dosage: 651 MILLIGRAM EVERY 2 WEEK (, (651 MG, 1X/DAY, LOADING DOSEPLANNED NUMBER )
     Route: 042
     Dates: start: 20140323
  14. CITALOPRAM [Concomitant]
     Active Substance: CITALOPRAM HYDROBROMIDE
     Indication: Thrombosis prophylaxis
     Dosage: 20 MILLIGRAM, ONCE A DAY(20 MG, QD (20 MG, 1X/DAY))
     Route: 048
     Dates: start: 201003
  15. DALTEPARIN [Concomitant]
     Active Substance: DALTEPARIN
     Indication: Thrombosis prophylaxis
     Dosage: 5000 INTERNATIONAL UNIT, ONCE A DAY5000 IU, QD (5000 IU, 1X/DAY)
     Route: 058
     Dates: start: 20160802
  16. DALTEPARIN [Concomitant]
     Active Substance: DALTEPARIN
     Dosage: UNK
     Route: 065
  17. DENOSUMAB [Concomitant]
     Active Substance: DENOSUMAB
     Indication: Breast cancer metastatic
     Dosage: 120 MILLIGRAM, ONCE A DAY (QMO (120 MG Q28D))
     Route: 058
     Dates: start: 20160323
  18. DENOSUMAB [Concomitant]
     Active Substance: DENOSUMAB
     Indication: Metastases to bone
     Dosage: 120 MILLIGRAM
     Route: 065
  19. DENOSUMAB [Concomitant]
     Active Substance: DENOSUMAB
     Dosage: 120 MILLIGRAM, 28 DAY Q28D
     Route: 058
  20. DENOSUMAB [Concomitant]
     Active Substance: DENOSUMAB
     Dosage: 120 MILLIGRAM MONTHLY, QMO (120 MG Q28D)
     Route: 058
     Dates: start: 20160323
  21. DEXAMETHASONE [Concomitant]
     Active Substance: DEXAMETHASONE
     Indication: Metastases to bone
     Dosage: 20 MILLIGRAM, EVERY 3 WEEK
     Route: 042
     Dates: start: 20160324
  22. DEXAMETHASONE [Concomitant]
     Active Substance: DEXAMETHASONE
     Indication: Breast cancer metastatic
     Dosage: 6 MILLIGRAM , EVERY 3 WEEK
     Route: 042
     Dates: start: 20191113
  23. DEXAMETHASONE [Concomitant]
     Active Substance: DEXAMETHASONE
     Dosage: 20 MILLIGRAM EVERY 2 WEEK, Q3W
     Route: 042
     Dates: start: 20160324
  24. DEXAMETHASONE [Concomitant]
     Active Substance: DEXAMETHASONE
     Dosage: 6 MILLIGRAM EVERY 2 WEEKS, Q3W
     Route: 042
     Dates: start: 20191113
  25. DEXAMETHASONE [Concomitant]
     Active Substance: DEXAMETHASONE
     Dosage: UNK
     Route: 065
  26. OMEPRAZOLE [Concomitant]
     Active Substance: OMEPRAZOLE
     Indication: Dyspepsia
     Dosage: 20 MILLIGRAM, ONCE A DAY
     Route: 048
     Dates: start: 20170727
  27. OMEPRAZOLE [Concomitant]
     Active Substance: OMEPRAZOLE
     Dosage: UNK
     Route: 065
  28. ACETAMINOPHEN [Concomitant]
     Active Substance: ACETAMINOPHEN
     Indication: Product used for unknown indication
     Dosage: UNK
     Route: 065

REACTIONS (8)
  - Atrial thrombosis [Recovered/Resolved]
  - Atrophic vulvovaginitis [Recovered/Resolved]
  - Diarrhoea [Not Recovered/Not Resolved]
  - Fatigue [Recovered/Resolved]
  - Infection [Recovered/Resolved]
  - Influenza like illness [Recovered/Resolved]
  - Joint stiffness [Recovered/Resolved]
  - Musculoskeletal stiffness [Recovered/Resolved]

NARRATIVE: CASE EVENT DATE: 20160324
